FAERS Safety Report 17699682 (Version 3)
Quarter: 2020Q2

REPORT INFORMATION
  Report Type: Spontaneous
  Country: US (occurrence: US)
  Receive Date: 20200423
  Receipt Date: 20200612
  Transmission Date: 20200714
  Serious: Yes (Other)
  Sender: FDA-Public Use
  Company Number: US-PFIZER INC-2020158597

PATIENT
  Age: 72 Year
  Sex: Female
  Weight: 56.25 kg

DRUGS (4)
  1. RECLAST [Concomitant]
     Active Substance: ZOLEDRONIC ACID
     Indication: BONE LOSS
     Dosage: UNK, EVERY 3-4 MONTHS
     Route: 042
     Dates: start: 20190925
  2. IBRANCE [Suspect]
     Active Substance: PALBOCICLIB
     Indication: BREAST CANCER STAGE IV
     Dosage: 100 MG, CYCLIC (ONE CAPSULE DAILY FOR 21 DAYS AND OFF FOR 7 DAYS)
     Route: 048
     Dates: start: 201908
  3. FASLODEX [Interacting]
     Active Substance: FULVESTRANT
     Dosage: 250 MG IN 5 CC AND SHE RECEIVES 2 AT A TIME
     Route: 030
     Dates: start: 20190826
  4. FULVESTRANT. [Interacting]
     Active Substance: FULVESTRANT
     Dosage: 250 MG IN 5 CC AND SHE RECEIVES 2 AT A TIME
     Route: 030
     Dates: start: 20190826

REACTIONS (7)
  - Pneumonia [Recovered/Resolved]
  - Retinal vein occlusion [Not Recovered/Not Resolved]
  - Drug interaction [Unknown]
  - Coronavirus infection [Recovered/Resolved]
  - Neoplasm progression [Recovered/Resolved]
  - White blood cell count decreased [Unknown]
  - Sciatica [Unknown]

NARRATIVE: CASE EVENT DATE: 201909
